FAERS Safety Report 6936113-X (Version None)
Quarter: 2010Q3

REPORT INFORMATION
  Report Type: 
  Country: None (occurrence: None)
  Receive Date: 20100819
  Receipt Date: 20100819
  Transmission Date: 20110219
  Serious: Yes (Hospitalization)
  Sender: FDA-Public Use
  Company Number: None

PATIENT
  Sex: Female
  Weight: 48 kg

DRUGS (2)
  1. ORTHO CEPT ETHINYL ESTRADIOL 0.03 MG/ DESOGESTREL 0.15 [Suspect]
     Indication: MENORRHAGIA
     Dosage: 1 TABLET DAILY BY MOUTH
     Route: 048
  2. VIVAGLOBIN [Suspect]
     Indication: HYPOGAMMAGLOBULINAEMIA
     Dosage: 40 ML  WEEKLY SUBCUTANEOUSLY
     Route: 058

REACTIONS (5)
  - DEEP VEIN THROMBOSIS [None]
  - PELVIC VENOUS THROMBOSIS [None]
  - PULMONARY EMBOLISM [None]
  - VENA CAVA THROMBOSIS [None]
  - VENOUS THROMBOSIS LIMB [None]
